FAERS Safety Report 8109106-7 (Version None)
Quarter: 2012Q1

REPORT INFORMATION
  Report Type: 
  Country: None (occurrence: None)
  Receive Date: 20120202
  Receipt Date: 20120109
  Transmission Date: 20120608
  Serious: No
  Sender: FDA-Public Use
  Company Number: US-AMGEN-USASP2012001359

PATIENT
  Age: 57 Year
  Sex: Female

DRUGS (2)
  1. CEPHALOSPORIN C [Concomitant]
  2. ENBREL [Suspect]
     Indication: PSORIATIC ARTHROPATHY
     Dosage: 50 MG, QWK
     Dates: start: 20111001

REACTIONS (2)
  - SURGERY [None]
  - URTICARIA [None]
